FAERS Safety Report 15918100 (Version 3)
Quarter: 2019Q4

REPORT INFORMATION
  Report Type: Spontaneous
  Country: FR (occurrence: FR)
  Receive Date: 20190205
  Receipt Date: 20191220
  Transmission Date: 20200122
  Serious: Yes (Hospitalization, Other)
  Sender: FDA-Public Use
  Company Number: FR-009507513-1901FRA011098

PATIENT
  Age: 49 Year
  Sex: Female
  Weight: 50 kg

DRUGS (5)
  1. LAROXYL [Suspect]
     Active Substance: AMITRIPTYLINE HYDROCHLORIDE
     Indication: POISONING DELIBERATE
     Dosage: 27 DOSAGE FORM, QD
     Route: 048
     Dates: start: 20190108, end: 20190108
  2. RISPERDAL [Suspect]
     Active Substance: RISPERIDONE
     Indication: DEPRESSION
     Dosage: 2 DOSAGE FORM, QD
     Route: 048
     Dates: end: 20190108
  3. MIRTAZAPINE. [Suspect]
     Active Substance: MIRTAZAPINE
     Dosage: 15 MILLIGRAM, QD
     Route: 048
     Dates: end: 20190108
  4. SPIRIVA [Suspect]
     Active Substance: TIOTROPIUM BROMIDE MONOHYDRATE
     Indication: ASTHMA
     Dosage: 1 DOSAGE FORM, QD
     Route: 055
     Dates: end: 20190108
  5. THERALENE [Suspect]
     Active Substance: TRIMEPRAZINE
     Indication: POISONING DELIBERATE
     Dosage: 1/2 BOTTLE
     Route: 048
     Dates: start: 20190108, end: 20190108

REACTIONS (4)
  - Mydriasis [Recovered/Resolved]
  - Myoclonus [Recovered/Resolved]
  - Somnolence [Recovered/Resolved]
  - Poisoning deliberate [Recovered/Resolved]

NARRATIVE: CASE EVENT DATE: 20190108
